FAERS Safety Report 9321655 (Version 1)
Quarter: 2013Q2

REPORT INFORMATION
  Report Type: Spontaneous
  Country: US (occurrence: US)
  Receive Date: 20130531
  Receipt Date: 20130531
  Transmission Date: 20140414
  Serious: No
  Sender: FDA-Public Use
  Company Number: US-BAYER-2013-066876

PATIENT
  Age: 73 Year
  Sex: Female
  Weight: 95.24 kg

DRUGS (1)
  1. ALEVE TABLET [Suspect]
     Indication: ARTHRITIS
     Dosage: UNK DF, OTHER FREQUENCY
     Route: 048
     Dates: start: 201305, end: 20130522

REACTIONS (1)
  - Drug ineffective [None]
